FAERS Safety Report 12513705 (Version 2)
Quarter: 2016Q3

REPORT INFORMATION
  Report Type: Spontaneous
  Country: US (occurrence: US)
  Receive Date: 20160630
  Receipt Date: 20160912
  Transmission Date: 20161109
  Serious: Yes (Hospitalization, Other)
  Sender: FDA-Public Use
  Company Number: US-JNJFOC-20160520919

PATIENT
  Age: 60 Year
  Sex: Female

DRUGS (3)
  1. XARELTO [Suspect]
     Active Substance: RIVAROXABAN
     Indication: THROMBOSIS PROPHYLAXIS
     Dosage: 15-30MG APPROXIMATELY, EXACT DOSAGE UNKNOWN
     Route: 048
     Dates: start: 2015, end: 2015
  2. XARELTO [Suspect]
     Active Substance: RIVAROXABAN
     Indication: ATRIAL FIBRILLATION
     Dosage: 15-30MG APPROXIMATELY, EXACT DOSAGE UNKNOWN
     Route: 048
     Dates: start: 2015, end: 2015
  3. XARELTO [Suspect]
     Active Substance: RIVAROXABAN
     Indication: CEREBROVASCULAR ACCIDENT PROPHYLAXIS
     Dosage: 15-30MG APPROXIMATELY, EXACT DOSAGE UNKNOWN
     Route: 048
     Dates: start: 2015, end: 2015

REACTIONS (1)
  - Gastrointestinal haemorrhage [Recovered/Resolved]

NARRATIVE: CASE EVENT DATE: 20150831
